FAERS Safety Report 14673097 (Version 1)
Quarter: 2018Q1

REPORT INFORMATION
  Report Type: Spontaneous
  Country: US (occurrence: US)
  Receive Date: 20180321
  Receipt Date: 20180321
  Transmission Date: 20180509
  Serious: Yes (Hospitalization)
  Sender: FDA-Public Use
  Company Number: None

PATIENT
  Age: 25 Year
  Sex: Male
  Weight: 90.5 kg

DRUGS (4)
  1. NIVOLUMAB 3 MG/KG [Suspect]
     Active Substance: NIVOLUMAB
     Indication: MALIGNANT MELANOMA
     Route: 042
     Dates: start: 20170418, end: 20171025
  2. BACTRIM-SS [Concomitant]
  3. IPILIMUMAB 1 MG/KG [Suspect]
     Active Substance: IPILIMUMAB
     Indication: MALIGNANT MELANOMA
     Dosage: 91.5 MG Q 6 WEEKS IV
     Route: 042
     Dates: start: 20170418, end: 20170926
  4. PREDNISONE. [Concomitant]
     Active Substance: PREDNISONE

REACTIONS (3)
  - Pleural effusion [None]
  - Pericardial effusion [None]
  - Chylothorax [None]

NARRATIVE: CASE EVENT DATE: 20171209
